FAERS Safety Report 6212962-0 (Version None)
Quarter: 2009Q2

REPORT INFORMATION
  Report Type: 
  Country: None (occurrence: None)
  Receive Date: 20090602
  Receipt Date: 20090602
  Transmission Date: 20091009
  Serious: Yes (Hospitalization)
  Sender: FDA-Public Use
  Company Number: None

PATIENT
  Sex: Female
  Weight: 80 kg

DRUGS (4)
  1. FLUDARIBINE [Suspect]
     Indication: MULTIPLE MYELOMA
     Dosage: 60 MG DAILY X 5 IV
     Route: 042
     Dates: start: 20090406, end: 20090410
  2. FLUDARIBINE [Suspect]
     Indication: TRANSPLANT
     Dosage: 60 MG DAILY X 5 IV
     Route: 042
     Dates: start: 20090406, end: 20090410
  3. CYCLOPHOSPHAMIDE [Suspect]
     Indication: MULTIPLE MYELOMA
     Dosage: 1740 MG DAILY X 2 IV
     Route: 042
     Dates: start: 20090411, end: 20090412
  4. CYCLOPHOSPHAMIDE [Suspect]
     Indication: TRANSPLANT
     Dosage: 1740 MG DAILY X 2 IV
     Route: 042
     Dates: start: 20090411, end: 20090412

REACTIONS (5)
  - ACUTE GRAFT VERSUS HOST DISEASE IN INTESTINE [None]
  - CLOSTRIDIUM DIFFICILE COLITIS [None]
  - DIARRHOEA [None]
  - NAUSEA [None]
  - VOMITING [None]
